FAERS Safety Report 9515846 (Version 1)
Quarter: 2013Q1

REPORT INFORMATION
  Report Type: Spontaneous
  Country: US (occurrence: None)
  Receive Date: 20130305
  Receipt Date: 20130305
  Transmission Date: 20140127
  Serious: Yes (Other)
  Sender: FDA-Public Use
  Company Number: 163-21880-12012172

PATIENT
  Age: 67 Year
  Sex: Female
  Weight: 140.8 kg

DRUGS (7)
  1. REVLIMID (LENALIDOMIDE) (25 MILLIGRAM, CAPSULES) [Suspect]
     Indication: PLASMA CELL MYELOMA
     Route: 048
     Dates: start: 20120103, end: 201201
  2. ASA (ACETYLSALICYLIC ACID) [Concomitant]
  3. CRESTOR (ROSUVASTATIN) [Concomitant]
  4. DECADRON (DEXAMETHASONE) [Concomitant]
  5. EVISTA (RALOXIFENE HYDROCHLORIDE) [Concomitant]
  6. METOPROLOL [Concomitant]
  7. VELCADE (BORTEZOMIB) [Concomitant]

REACTIONS (7)
  - Thrombosis [None]
  - Pulmonary thrombosis [None]
  - Fatigue [None]
  - Asthenia [None]
  - Tremor [None]
  - Dizziness [None]
  - Dyspnoea [None]
